FAERS Safety Report 8936599 (Version 2)
Quarter: 2013Q1

REPORT INFORMATION
  Report Type: Spontaneous
  Country: JP (occurrence: JP)
  Receive Date: 20121130
  Receipt Date: 20130128
  Transmission Date: 20140127
  Serious: Yes (Hospitalization)
  Sender: FDA-Public Use
  Company Number: JP-JNJFOC-20121112511

PATIENT
  Age: 38 Year
  Sex: Female
  Weight: 49 kg

DRUGS (3)
  1. REMICADE [Suspect]
     Indication: CROHN^S DISEASE
     Route: 042
     Dates: start: 20121019
  2. REMICADE [Suspect]
     Indication: CROHN^S DISEASE
     Dosage: 83ML/H
     Route: 042
     Dates: start: 20121105
  3. ISOTONIC SODIUM CHLORIDE SOLUTION [Concomitant]
     Route: 065
     Dates: start: 20111105, end: 20111105

REACTIONS (5)
  - Tachycardia [Recovering/Resolving]
  - Infusion related reaction [Recovering/Resolving]
  - Dyspnoea [Recovering/Resolving]
  - Cough [Recovering/Resolving]
  - Nasopharyngitis [Unknown]
